FAERS Safety Report 7559967-5 (Version None)
Quarter: 2011Q2

REPORT INFORMATION
  Report Type: 
  Country: None (occurrence: None)
  Receive Date: 20110621
  Receipt Date: 20110610
  Transmission Date: 20111010
  Serious: Yes (Hospitalization)
  Sender: FDA-Public Use
  Company Number: US-ACTELION-A-US2011-49510

PATIENT

DRUGS (3)
  1. CALCIUM CHANNEL BLOCKERS [Concomitant]
  2. TRACLEER [Suspect]
     Indication: PULMONARY ARTERIAL HYPERTENSION
     Dosage: UNK
     Route: 048
     Dates: start: 20090511, end: 20110420
  3. REVATIO [Concomitant]

REACTIONS (9)
  - PYREXIA [None]
  - LIVER FUNCTION TEST ABNORMAL [None]
  - CHEST PAIN [None]
  - VOMITING [None]
  - DYSPNOEA [None]
  - NAUSEA [None]
  - FATIGUE [None]
  - ABDOMINAL PAIN [None]
  - ASTHENIA [None]
